FAERS Safety Report 8807214 (Version 2)
Quarter: 2012Q4

REPORT INFORMATION
  Report Type: Report from Study
  Country: JP (occurrence: JP)
  Receive Date: 20120925
  Receipt Date: 20121009
  Transmission Date: 20130627
  Serious: Yes (Hospitalization)
  Sender: FDA-Public Use
  Company Number: JP-ROCHE-1129888

PATIENT
  Age: 62 Year
  Sex: Male
  Weight: 50.1 kg

DRUGS (29)
  1. MABTHERA [Suspect]
     Indication: DIFFUSE LARGE B-CELL LYMPHOMA
     Dosage: Last dose:1mg/ml; Last dose prior to SAE:13/Sep/2012
     Route: 042
     Dates: start: 20120516
  2. CYCLOPHOSPHAMIDE [Suspect]
     Indication: DIFFUSE LARGE B-CELL LYMPHOMA
     Dosage: Last dose prior to SAE:13/Sep/2012
     Route: 042
     Dates: start: 20120516
  3. DOXORUBICIN [Suspect]
     Indication: DIFFUSE LARGE B-CELL LYMPHOMA
     Dosage: Last dose prior to SAE:13/Sep/2012
     Route: 042
     Dates: start: 20120516
  4. VINCRISTINE [Suspect]
     Indication: DIFFUSE LARGE B-CELL LYMPHOMA
     Dosage: Push; Last dose prior to SAE:13/Aug/2012
     Route: 042
     Dates: start: 20120516
  5. PREDNISONE [Suspect]
     Indication: DIFFUSE LARGE B-CELL LYMPHOMA
     Dosage: Last dose prior to SAE:13/Sep/2012
     Route: 048
     Dates: start: 20120516
  6. ALLOPURINOL [Concomitant]
     Indication: HYPERURICAEMIA
     Route: 065
     Dates: start: 20120601, end: 20120914
  7. ETIZOLAM [Concomitant]
     Indication: ANXIETY
     Route: 065
     Dates: start: 20120601
  8. ETIZOLAM [Concomitant]
     Indication: INSOMNIA
  9. AMLODIPINE BESILATE [Concomitant]
     Indication: HYPERTENSION
     Route: 065
     Dates: start: 20120602
  10. SULFAMETHOXAZOLE/TRIMETHOPRIM [Concomitant]
     Route: 065
     Dates: start: 20120602
  11. METOCLOPRAMIDE [Concomitant]
     Indication: HICCUPS
     Route: 065
     Dates: start: 20120517
  12. MAGNESIUM OXIDE [Concomitant]
     Indication: CONSTIPATION
     Route: 065
     Dates: start: 20120525
  13. SENNOSIDE A+B [Concomitant]
     Indication: CONSTIPATION
     Route: 065
     Dates: start: 20120425
  14. SENNOSIDE A+B [Concomitant]
     Route: 065
     Dates: start: 20120525
  15. MECOBALAMIN [Concomitant]
     Indication: DYSAESTHESIA
     Route: 065
     Dates: start: 20120823, end: 20120914
  16. LANSOPRAZOLE [Concomitant]
     Indication: GASTRIC ULCER
  17. L-GLUTAMINE [Concomitant]
     Indication: GASTRIC ULCER
     Route: 065
     Dates: start: 20120601, end: 20120821
  18. L-GLUTAMINE [Concomitant]
     Route: 065
     Dates: start: 20120825
  19. SUCRALFATE [Concomitant]
     Indication: GASTRITIS
     Route: 065
     Dates: start: 20120601, end: 20120821
  20. URSODEOXYCHOLIC ACID [Concomitant]
     Indication: LIVER DISORDER
     Route: 065
     Dates: start: 20120727, end: 20120821
  21. URSODEOXYCHOLIC ACID [Concomitant]
     Route: 065
     Dates: start: 20120914
  22. BROTIZOLAM [Concomitant]
     Indication: INSOMNIA
     Route: 065
     Dates: start: 20120611
  23. MONOAMMONIUM GLYCYRRHIZINATE [Concomitant]
     Indication: LIVER DISORDER
     Route: 065
     Dates: start: 20120914
  24. GLYCINE [Concomitant]
     Indication: LIVER DISORDER
     Route: 065
     Dates: start: 20120914
  25. AMINOACETIC ACID [Concomitant]
     Indication: LIVER DISORDER
     Route: 065
     Dates: start: 20120914
  26. DL-METHIONINE [Concomitant]
     Indication: LIVER DISORDER
     Route: 065
     Dates: start: 20120914
  27. ACETAMINOPHEN [Concomitant]
     Indication: FEBRILE NEUTROPENIA
     Route: 065
     Dates: start: 20120920, end: 20120927
  28. CEFEPIME DIHYDROCHLORIDE [Concomitant]
     Indication: FEBRILE NEUTROPENIA
     Route: 065
     Dates: start: 20120920
  29. MEROPENEM [Concomitant]
     Indication: PYREXIA
     Route: 065
     Dates: start: 20120927

REACTIONS (1)
  - Liver disorder [Recovered/Resolved]
